FAERS Safety Report 23267239 (Version 1)
Quarter: 2023Q4

REPORT INFORMATION
  Report Type: Spontaneous
  Country: SK (occurrence: SK)
  Receive Date: 20231206
  Receipt Date: 20231206
  Transmission Date: 20240109
  Serious: Yes (Other)
  Sender: FDA-Public Use
  Company Number: SK-SERVIER-S23013478

PATIENT

DRUGS (1)
  1. ONCASPAR [Suspect]
     Active Substance: PEGASPARGASE
     Indication: B-cell type acute leukaemia
     Dosage: UNK
     Route: 065
     Dates: start: 20230701, end: 20230715

REACTIONS (2)
  - Pancreatitis [Recovered/Resolved]
  - Steroid diabetes [Unknown]

NARRATIVE: CASE EVENT DATE: 20230729
